FAERS Safety Report 9813600 (Version 1)
Quarter: 2014Q1

REPORT INFORMATION
  Report Type: Spontaneous
  Country: US (occurrence: None)
  Receive Date: 20140109
  Receipt Date: 20140109
  Transmission Date: 20141002
  Serious: Yes (Hospitalization)
  Sender: FDA-Public Use
  Company Number: None

PATIENT
  Age: 66 Year
  Sex: Female
  Weight: 135.9 kg

DRUGS (15)
  1. PERTUZUMAB [Suspect]
     Indication: INFLAMMATORY CARCINOMA OF THE BREAST
     Route: 042
     Dates: start: 20130816
  2. TRASTUZUMAB [Suspect]
     Indication: INFLAMMATORY CARCINOMA OF THE BREAST
     Route: 042
     Dates: start: 20130816
  3. ASA (CHILDRENS) (ACETYLSALICYLIC ACID) (CHILDRENS) [Concomitant]
  4. COMPAZINE (PROCHLORPERAZINE MALEATE) [Concomitant]
  5. FLUCONAZOLE [Concomitant]
  6. IMODIUM A.D. [Concomitant]
  7. INSULIN ASPART [Concomitant]
  8. INSULIN NPH HUMAN [Concomitant]
  9. METOPROLOL SUCCINATE EXTENDED RELEASE [Concomitant]
  10. METOPROLOL-XL (METOPROLOL SUCCINATE EXTENDED RELEASE) [Concomitant]
  11. NYSTATIN POWDER [Concomitant]
  12. ONDANSETRON HCL [Concomitant]
  13. OXYBUTYNIN CHLORIDE [Concomitant]
  14. PRAVASTATIN [Concomitant]
  15. ZOLOFT (SERTRALINE) [Concomitant]

REACTIONS (5)
  - Pyrexia [None]
  - Paronychia [None]
  - Cellulitis [None]
  - Pain [None]
  - Diabetic foot [None]
